FAERS Safety Report 4314931-4 (Version None)
Quarter: 2004Q1

REPORT INFORMATION
  Report Type: 
  Country: None (occurrence: None)
  Receive Date: 20040310
  Receipt Date: 20030130
  Transmission Date: 20041129
  Serious: Yes (Other)
  Sender: FDA-Public Use
  Company Number: WAES 0302USA00009

PATIENT
  Age: 65 Year
  Sex: Male
  Weight: 70 kg

DRUGS (8)
  1. [THERAPY UNSPECIFIED] [Concomitant]
     Indication: BLOOD CHOLESTEROL INCREASED
     Dates: start: 19990601, end: 20030701
  2. CELEBREX [Concomitant]
     Dates: end: 20010101
  3. DEPO-MEDROL WITH LIDOCAINE [Concomitant]
     Dates: start: 20010905, end: 20010905
  4. DEPO-MEDROL WITH LIDOCAINE [Concomitant]
     Dates: start: 20010806, end: 20010806
  5. VIOXX [Suspect]
     Indication: BONE PAIN
     Route: 048
     Dates: start: 20010101
  6. VIOXX [Suspect]
     Route: 048
     Dates: start: 19990928
  7. VIOXX [Suspect]
     Indication: ARTHRITIS
     Route: 048
     Dates: start: 20010101
  8. VIOXX [Suspect]
     Route: 048
     Dates: start: 19990928

REACTIONS (28)
  - ARTHRALGIA [None]
  - ATHEROSCLEROSIS [None]
  - BACK PAIN [None]
  - BLOOD TRIGLYCERIDES INCREASED [None]
  - BLOOD URINE [None]
  - BLOOD URINE PRESENT [None]
  - DECREASED ACTIVITY [None]
  - DRUG INEFFECTIVE [None]
  - EXOSTOSIS [None]
  - GASTRIC DISORDER [None]
  - GASTRIC HAEMORRHAGE [None]
  - GASTROINTESTINAL DISORDER [None]
  - HYPOAESTHESIA [None]
  - INJURY [None]
  - INTERVERTEBRAL DISC DEGENERATION [None]
  - JOINT RANGE OF MOTION DECREASED [None]
  - JOINT STIFFNESS [None]
  - MELAENA [None]
  - MUSCULOSKELETAL STIFFNESS [None]
  - NECK PAIN [None]
  - PAIN [None]
  - PAIN IN EXTREMITY [None]
  - PARAESTHESIA [None]
  - POST PROCEDURAL COMPLICATION [None]
  - ROTATOR CUFF SYNDROME [None]
  - SCIATICA [None]
  - SCOLIOSIS [None]
  - SPINAL COLUMN STENOSIS [None]
